FAERS Safety Report 10243648 (Version 1)
Quarter: 2014Q2

REPORT INFORMATION
  Report Type: Spontaneous
  Country: US (occurrence: US)
  Receive Date: 20140618
  Receipt Date: 20140618
  Transmission Date: 20141212
  Serious: Yes (Other)
  Sender: FDA-Public Use
  Company Number: US-SA-2014SA074861

PATIENT
  Age: 81 Year
  Sex: Female

DRUGS (2)
  1. LANTUS [Suspect]
     Indication: TYPE 1 DIABETES MELLITUS
     Dosage: DOSE: 6 U AM AND 8 U PM
     Route: 065
  2. HUMALOG [Concomitant]

REACTIONS (3)
  - Dementia [Unknown]
  - Malaise [Unknown]
  - Drug administration error [Unknown]
